FAERS Safety Report 6668191-X (Version None)
Quarter: 2010Q2

REPORT INFORMATION
  Report Type: 
  Country: None (occurrence: None)
  Receive Date: 20100405
  Receipt Date: 20100405
  Transmission Date: 20101027
  Serious: Yes (Hospitalization)
  Sender: FDA-Public Use
  Company Number: None

PATIENT
  Sex: Female
  Weight: 52.3 kg

DRUGS (2)
  1. CISPLATIN [Suspect]
     Dosage: 113 MG
     Dates: end: 20100311
  2. TAXOL [Suspect]
     Dosage: 204 MG
     Dates: end: 20100310

REACTIONS (3)
  - INTESTINAL DILATATION [None]
  - NAUSEA [None]
  - VOMITING [None]
